FAERS Safety Report 15489030 (Version 1)
Quarter: 2018Q4

REPORT INFORMATION
  Report Type: Spontaneous
  Country: US (occurrence: US)
  Receive Date: 20181004
  Receipt Date: 20181004
  Transmission Date: 20190205
  Serious: Yes (Disabling)
  Sender: FDA-Public Use
  Company Number: None

PATIENT
  Age: 36 Year
  Sex: Female
  Weight: 88.45 kg

DRUGS (9)
  1. PEPPERMINT LEAF [Concomitant]
  2. NEXPLANON [Suspect]
     Active Substance: ETONOGESTREL
  3. RHODIOLA [Concomitant]
     Active Substance: HERBALS
  4. MAGNESIUM [Concomitant]
     Active Substance: MAGNESIUM
  5. LEVOTHYROXINE. [Concomitant]
     Active Substance: LEVOTHYROXINE
  6. TOPIRAMATE. [Concomitant]
     Active Substance: TOPIRAMATE
  7. GABAPENTIN. [Concomitant]
     Active Substance: GABAPENTIN
  8. VITAMIN D [Concomitant]
     Active Substance: CHOLECALCIFEROL
  9. VITAMIN B COMPLEX [Concomitant]
     Active Substance: CYANOCOBALAMIN\DEXPANTHENOL\NIACINAMIDE\PYRIDOXINE HYDROCHLORIDE\RIBOFLAVIN 5^-PHOSPHATE SODIUM\THIAMINE HYDROCHLORIDE\VITAMIN B COMPLEX

REACTIONS (2)
  - Trigeminal neuralgia [None]
  - Device issue [None]

NARRATIVE: CASE EVENT DATE: 20171210
